FAERS Safety Report 7414306-5 (Version None)
Quarter: 2011Q2

REPORT INFORMATION
  Report Type: 
  Country: None (occurrence: None)
  Receive Date: 20110411
  Receipt Date: 20110411
  Transmission Date: 20111010
  Serious: Yes (Other)
  Sender: FDA-Public Use
  Company Number: None

PATIENT
  Age: 79 Year
  Sex: Male
  Weight: 74.8435 kg

DRUGS (2)
  1. ONDANSETRON [Suspect]
     Indication: NAUSEA
     Dosage: EVERY 8 HOURS
     Dates: start: 20110407, end: 20110408
  2. ONDANSETRON [Suspect]
     Indication: CHEMOTHERAPY
     Dosage: EVERY 8 HOURS
     Dates: start: 20110407, end: 20110408

REACTIONS (8)
  - DIZZINESS [None]
  - PRESYNCOPE [None]
  - VISION BLURRED [None]
  - FAECALOMA [None]
  - CONSTIPATION [None]
  - PAIN [None]
  - HEADACHE [None]
  - HAEMATOCHEZIA [None]
